FAERS Safety Report 5514966-X (Version None)
Quarter: 2007Q4

REPORT INFORMATION
  Report Type: 
  Country: None (occurrence: None)
  Receive Date: 20071113
  Receipt Date: 20061024
  Transmission Date: 20080405
  Serious: No
  Sender: FDA-Public Use
  Company Number: A0624770A

PATIENT
  Sex: Female

DRUGS (2)
  1. COREG [Suspect]
     Indication: DRUG USE FOR UNKNOWN INDICATION
     Dosage: 25MG TWICE PER DAY
     Route: 048
     Dates: start: 20060801
  2. COUGH MEDICINE [Concomitant]

REACTIONS (5)
  - BREATH SOUNDS ABNORMAL [None]
  - CHEILITIS [None]
  - COUGH [None]
  - ORAL PAIN [None]
  - RHINORRHOEA [None]
